FAERS Safety Report 24580549 (Version 2)
Quarter: 2024Q4

REPORT INFORMATION
  Report Type: Spontaneous
  Country: US (occurrence: US)
  Receive Date: 20241105
  Receipt Date: 20241121
  Transmission Date: 20250115
  Serious: No
  Sender: BLUEPRINT MEDICINES
  Company Number: US-Blueprint Medicines Corporation-5204

PATIENT
  Age: 74 Year
  Sex: Male

DRUGS (2)
  1. AYVAKIT [Suspect]
     Active Substance: AVAPRITINIB
     Indication: Systemic mastocytosis
     Dosage: 200MG EVERY OTHER DAY; ALTERNATING WITH 100MG EVERY OTHER DAY
     Route: 065
     Dates: start: 20240629
  2. AYVAKIT [Suspect]
     Active Substance: AVAPRITINIB
     Dosage: 200MG EVERY OTHER DAY; ALTERNATING WITH 100MG EVERY OTHER DAY
     Route: 065
     Dates: start: 20240629

REACTIONS (3)
  - Tooth disorder [Not Recovered/Not Resolved]
  - Gingival disorder [Recovering/Resolving]
  - Peripheral swelling [Recovering/Resolving]
